FAERS Safety Report 7397471-8 (Version None)
Quarter: 2011Q2

REPORT INFORMATION
  Report Type: 
  Country: None (occurrence: None)
  Receive Date: 20110406
  Receipt Date: 20110323
  Transmission Date: 20111010
  Serious: Yes (Hospitalization)
  Sender: FDA-Public Use
  Company Number: PHHY2010US77124

PATIENT
  Sex: Male

DRUGS (1)
  1. EXJADE [Suspect]
     Indication: SICKLE CELL ANAEMIA
     Dosage: 750 MG, DAILY
     Route: 048

REACTIONS (6)
  - CHEST PAIN [None]
  - NAUSEA [None]
  - MALAISE [None]
  - GASTRIC DISORDER [None]
  - VOMITING [None]
  - SICKLE CELL ANAEMIA WITH CRISIS [None]
